FAERS Safety Report 5773014-7 (Version None)
Quarter: 2008Q2

REPORT INFORMATION
  Report Type: 
  Country: None (occurrence: None)
  Receive Date: 20080613
  Receipt Date: 20080603
  Transmission Date: 20081010
  Serious: Yes (Other)
  Sender: FDA-Public Use
  Company Number: US-PFIZER INC-2008048551

PATIENT
  Sex: Male
  Weight: 120.2 kg

DRUGS (8)
  1. CHANTIX [Suspect]
     Indication: SMOKING CESSATION THERAPY
     Dates: start: 20080518, end: 20080525
  2. XANAX [Concomitant]
  3. LIPITOR [Concomitant]
  4. PERCOCET [Concomitant]
  5. LISINOPRIL [Concomitant]
  6. AVODART [Concomitant]
  7. ZOLOFT [Concomitant]
  8. PRAZOSIN HCL [Concomitant]

REACTIONS (1)
  - APNOEA [None]
